FAERS Safety Report 6396495-7 (Version None)
Quarter: 2009Q4

REPORT INFORMATION
  Report Type: 
  Country: None (occurrence: None)
  Receive Date: 20091012
  Receipt Date: 20091005
  Transmission Date: 20100525
  Serious: Yes (Other)
  Sender: FDA-Public Use
  Company Number: JP-AVENTIS-200912748JP

PATIENT

DRUGS (1)
  1. TAXOTERE [Suspect]
     Route: 041
     Dates: start: 20090924

REACTIONS (3)
  - INTERSTITIAL LUNG DISEASE [None]
  - PYREXIA [None]
  - RENAL DISORDER [None]
